FAERS Safety Report 10210807 (Version 1)
Quarter: 2014Q2

REPORT INFORMATION
  Report Type: Spontaneous
  Country: US (occurrence: None)
  Receive Date: 20140528
  Receipt Date: 20140528
  Transmission Date: 20141212
  Serious: Yes (Other)
  Sender: FDA-Public Use
  Company Number: 2014P1004343

PATIENT
  Age: 52 Year
  Sex: Female

DRUGS (1)
  1. INFUMORPH [Suspect]
     Indication: CANCER PAIN

REACTIONS (3)
  - Seroma [None]
  - Implant site pain [None]
  - Implant site extravasation [None]
